FAERS Safety Report 18741456 (Version 1)
Quarter: 2021Q1

REPORT INFORMATION
  Report Type: Spontaneous
  Country: US (occurrence: US)
  Receive Date: 20210114
  Receipt Date: 20210114
  Transmission Date: 20210419
  Serious: Yes (Life-Threatening, Hospitalization)
  Sender: FDA-Public Use
  Company Number: US-FRESENIUS KABI-FK202100489

PATIENT
  Age: 35 Year
  Sex: Female

DRUGS (27)
  1. LIDOCAINE (MANUFACTURER UNKNOWN) [Interacting]
     Active Substance: LIDOCAINE
     Route: 042
  2. KETAMINE [Interacting]
     Active Substance: KETAMINE
     Indication: GENERAL ANAESTHESIA
     Route: 065
  3. LIDOCAINE (MANUFACTURER UNKNOWN) [Suspect]
     Active Substance: LIDOCAINE
     Indication: GENERAL ANAESTHESIA
     Route: 042
  4. EPINEPHRINE. [Concomitant]
     Active Substance: EPINEPHRINE
     Dosage: INFUSION INCREASED TO 0.06 MICROGRAM/KG/MINUTE
     Route: 065
  5. DOBUTAMINE [Concomitant]
     Active Substance: DOBUTAMINE HYDROCHLORIDE
     Indication: VENTRICULAR TACHYCARDIA
     Dosage: INFUSION AT 6 MICROG/KG/MIN
     Route: 065
  6. LIDOCAINE (MANUFACTURER UNKNOWN) [Interacting]
     Active Substance: LIDOCAINE
     Dosage: IV INFUSION OF AT 2 MG/MINUTE
     Route: 042
  7. FENTANYL (MANUFACTURER UNKNOWN) [Interacting]
     Active Substance: FENTANYL
     Indication: GENERAL ANAESTHESIA
     Route: 065
  8. AMIODARONE HCL (MANUFACTURER UNKNOWN) [Interacting]
     Active Substance: AMIODARONE HYDROCHLORIDE
     Indication: VENTRICULAR ARRHYTHMIA
     Dosage: INFUSION AT 1 MG/MINUTE
     Route: 065
  9. AMIODARONE HCL (MANUFACTURER UNKNOWN) [Interacting]
     Active Substance: AMIODARONE HYDROCHLORIDE
     Dosage: THREE ADDITIONAL BOLUSES OF 150 MG THROUGHOUT POD?1 AND POD?2
     Route: 040
  10. PHENYLEPHRINE [Concomitant]
     Active Substance: PHENYLEPHRINE HYDROCHLORIDE
     Indication: VENTRICULAR TACHYCARDIA
     Route: 065
  11. VASOPRESSIN. [Concomitant]
     Active Substance: VASOPRESSIN
     Indication: VENTRICULAR TACHYCARDIA
     Dosage: 0.03 UNITS/MINUTE
     Route: 065
  12. PROPOFOL (MANUFACTURER UNKNOWN) [Interacting]
     Active Substance: PROPOFOL
     Indication: GENERAL ANAESTHESIA
     Route: 065
  13. NOREPINEPHRINE. [Concomitant]
     Active Substance: NOREPINEPHRINE
     Indication: VENTRICULAR TACHYCARDIA
     Dosage: INFUSION AT 0.4 MICROG/KG/MINUTE
     Route: 065
  14. DEXMEDETOMIDINE. [Concomitant]
     Active Substance: DEXMEDETOMIDINE
     Indication: PRODUCT USED FOR UNKNOWN INDICATION
     Route: 065
  15. LIDOCAINE (MANUFACTURER UNKNOWN) [Interacting]
     Active Substance: LIDOCAINE
     Route: 040
  16. LIDOCAINE (MANUFACTURER UNKNOWN) [Interacting]
     Active Substance: LIDOCAINE
     Dosage: IV INFUSION INCREASED TO 3 MG/MINUTE TWO HOURS AFTER THE INITIATION
     Route: 042
  17. AMIODARONE HCL (MANUFACTURER UNKNOWN) [Interacting]
     Active Substance: AMIODARONE HYDROCHLORIDE
     Dosage: INFUSION AT 0.5 MG/MINUTE
     Route: 065
  18. DOBUTAMINE [Concomitant]
     Active Substance: DOBUTAMINE HYDROCHLORIDE
     Dosage: INFUSION INCREASED TO 7 MICROG/KG/MINUTE
     Route: 065
  19. LIDOCAINE (MANUFACTURER UNKNOWN) [Interacting]
     Active Substance: LIDOCAINE
     Indication: VENTRICULAR ARRHYTHMIA
     Route: 042
  20. LIDOCAINE (MANUFACTURER UNKNOWN) [Interacting]
     Active Substance: LIDOCAINE
     Dosage: IV INFUSION INCREASED TO 4 MG/MINUTE 3 HOURS LATER
     Route: 042
  21. KETAMINE [Interacting]
     Active Substance: KETAMINE
     Dosage: INFUSION AT 10 MG/HOUR, WHICH WAS CONTINUED THROUGHOUT THE PROCEDURE AND STOPPED ON POD?3
     Route: 065
  22. EPINEPHRINE. [Concomitant]
     Active Substance: EPINEPHRINE
     Indication: VENTRICULAR TACHYCARDIA
     Dosage: INFUSION AT 0.04 MICROGRAM/KG/MINUTE
     Route: 065
  23. PROCAINAMIDE HYDROCHLORIDE. [Concomitant]
     Active Substance: PROCAINAMIDE HYDROCHLORIDE
     Indication: VENTRICULAR TACHYCARDIA
     Route: 065
  24. EPOPROSTENOL. [Concomitant]
     Active Substance: EPOPROSTENOL
     Indication: PRODUCT USED FOR UNKNOWN INDICATION
     Route: 065
  25. AMIODARONE HCL (MANUFACTURER UNKNOWN) [Interacting]
     Active Substance: AMIODARONE HYDROCHLORIDE
     Dosage: BOLUS 150 MG
     Route: 040
  26. AMIODARONE HCL (MANUFACTURER UNKNOWN) [Interacting]
     Active Substance: AMIODARONE HYDROCHLORIDE
     Dosage: INFUSION AT 1 MG/MINUTE FOR 6 HOURS
     Route: 065
  27. ROCURONIUM [Concomitant]
     Active Substance: ROCURONIUM BROMIDE
     Indication: GENERAL ANAESTHESIA
     Route: 065

REACTIONS (2)
  - Drug interaction [Recovering/Resolving]
  - Local anaesthetic systemic toxicity [Recovering/Resolving]
